FAERS Safety Report 9034708 (Version 1)
Quarter: 2013Q1

REPORT INFORMATION
  Report Type: Spontaneous
  Country: US (occurrence: None)
  Receive Date: 20130111
  Receipt Date: 20130111
  Transmission Date: 20140127
  Serious: Yes (Hospitalization, Other)
  Sender: FDA-Public Use
  Company Number: 2012P1068358

PATIENT
  Age: 78 Year
  Sex: Male
  Weight: 63.5 kg

DRUGS (22)
  1. REGRANEX GEL 0.01% [Suspect]
     Indication: IMPAIRED HEALING
     Route: 061
     Dates: start: 20121130
  2. OASIS WOUND MATRIX [Suspect]
     Indication: IMPAIRED HEALING
     Dates: start: 20121121, end: 20121128
  3. ASPIRIN [Suspect]
     Route: 048
  4. PLAVIX [Suspect]
     Route: 048
  5. FLOMAX [Concomitant]
  6. LIPITOR [Concomitant]
  7. METANX [Concomitant]
  8. NEURONTIN [Concomitant]
  9. TRICOR [Concomitant]
  10. LANTUS [Concomitant]
  11. LEXAPRO [Concomitant]
  12. ARICEPT [Concomitant]
  13. AMARYL [Concomitant]
  14. AVODART [Concomitant]
  15. COREG [Concomitant]
  16. FOLIC ACID [Concomitant]
  17. LASIX [Concomitant]
  18. NORVASC [Concomitant]
  19. PROZAC [Concomitant]
  20. RANEXA [Concomitant]
  21. SYNTHROID [Concomitant]
  22. VASOTEC [Concomitant]

REACTIONS (15)
  - Abdominal pain lower [None]
  - Increased tendency to bruise [None]
  - Ascites [None]
  - Blood glucose increased [None]
  - White blood cell count decreased [None]
  - Iron deficiency anaemia [None]
  - Pleural effusion [None]
  - Splenomegaly [None]
  - Pancytopenia [None]
  - Thrombocytopenia [None]
  - International normalised ratio increased [None]
  - Hepatic cirrhosis [None]
  - Hepatic encephalopathy [None]
  - Ammonia increased [None]
  - Lymphoma [None]
